FAERS Safety Report 15983562 (Version 2)
Quarter: 2019Q1

REPORT INFORMATION
  Report Type: Spontaneous
  Country: US (occurrence: US)
  Receive Date: 20190220
  Receipt Date: 20190325
  Transmission Date: 20190418
  Serious: No
  Sender: FDA-Public Use
  Company Number: US-B.I. PHARMACEUTICALS,INC./RIDGEFIELD-2019-BI-007552

PATIENT
  Age: 90 Year
  Sex: Male

DRUGS (1)
  1. SPIRIVA [Suspect]
     Active Substance: TIOTROPIUM BROMIDE MONOHYDRATE
     Indication: ASBESTOSIS
     Dosage: ONE CAPSULE QD;  FORM STRENGTH: 18 MCG; FORMULATION: CAPSULE? NO DOSE NOT CHANGED
     Route: 055
     Dates: start: 20190217

REACTIONS (3)
  - Product quality issue [Unknown]
  - Overdose [Recovered/Resolved]
  - Off label use [Unknown]

NARRATIVE: CASE EVENT DATE: 20190217
